FAERS Safety Report 6531250-6 (Version None)
Quarter: 2010Q1

REPORT INFORMATION
  Report Type: 
  Country: None (occurrence: None)
  Receive Date: 20100108
  Receipt Date: 20100104
  Transmission Date: 20100710
  Serious: Yes (Hospitalization)
  Sender: FDA-Public Use
  Company Number: NL-WYE-G05262810

PATIENT
  Age: 31 Year
  Sex: Female
  Weight: 57 kg

DRUGS (2)
  1. EFFEXOR XR [Suspect]
     Indication: DEPRESSION
     Dates: start: 20090302
  2. FLUVOXAMINE MALEATE [Suspect]
     Indication: DEPRESSION
     Dosage: 100 MG
     Dates: start: 20010303, end: 20090320

REACTIONS (5)
  - ANXIETY [None]
  - CRYING [None]
  - DEREALISATION [None]
  - DRUG WITHDRAWAL SYNDROME [None]
  - MYOCLONUS [None]
